FAERS Safety Report 24786276 (Version 2)
Quarter: 2025Q1

REPORT INFORMATION
  Report Type: Spontaneous
  Country: JP (occurrence: JP)
  Receive Date: 20241229
  Receipt Date: 20250305
  Transmission Date: 20250408
  Serious: Yes (Other)
  Sender: TAKEDA
  Company Number: JP-TAKEDA-2024TJP018466

PATIENT
  Age: 6 Decade
  Sex: Male

DRUGS (2)
  1. FRUZAQLA [Suspect]
     Active Substance: FRUQUINTINIB
     Indication: Colorectal cancer recurrent
     Dosage: 5 MILLIGRAM, QD
     Dates: start: 20241218, end: 20241224
  2. FRUZAQLA [Suspect]
     Active Substance: FRUQUINTINIB

REACTIONS (2)
  - Headache [Unknown]
  - Hypertension [Unknown]

NARRATIVE: CASE EVENT DATE: 20241225
